FAERS Safety Report 9368770 (Version 1)
Quarter: 2013Q2

REPORT INFORMATION
  Report Type: Spontaneous
  Country: DE (occurrence: DE)
  Receive Date: 20130626
  Receipt Date: 20130626
  Transmission Date: 20140414
  Serious: Yes (Hospitalization, Other)
  Sender: FDA-Public Use
  Company Number: PHHY2013DE062765

PATIENT
  Age: 73 Year
  Sex: Male

DRUGS (2)
  1. LEVETIRACETAM [Suspect]
     Indication: PARTIAL SEIZURES WITH SECONDARY GENERALISATION
     Dosage: 500 MG, BID
  2. LEVETIRACETAM [Suspect]
     Dosage: 500 MG, UNK

REACTIONS (7)
  - Loss of consciousness [Unknown]
  - Foot fracture [Unknown]
  - Stupor [Recovered/Resolved]
  - Injury [Unknown]
  - Fatigue [Recovered/Resolved]
  - Somnolence [Unknown]
  - Drug level increased [Unknown]
